FAERS Safety Report 22066653 (Version 2)
Quarter: 2023Q2

REPORT INFORMATION
  Report Type: Report from Study
  Country: DE (occurrence: DE)
  Receive Date: 20230306
  Receipt Date: 20230407
  Transmission Date: 20230722
  Serious: Yes (Other)
  Sender: FDA-Public Use
  Company Number: DE-002147023-NVSC2022DE290460

PATIENT
  Sex: Female
  Weight: 128 kg

DRUGS (19)
  1. COSENTYX [Suspect]
     Active Substance: SECUKINUMAB
     Indication: Psoriatic arthropathy
     Dosage: 150 MG, ONCE/SINGLE (PER APPLICATION)
     Route: 058
     Dates: start: 20200804, end: 20200804
  2. COSENTYX [Suspect]
     Active Substance: SECUKINUMAB
     Dosage: 300 MG, QMO
     Route: 058
     Dates: start: 20220804, end: 20220804
  3. COSENTYX [Suspect]
     Active Substance: SECUKINUMAB
     Dosage: 300 MG, ONCE/SINGLE
     Route: 058
     Dates: start: 20220904, end: 20220904
  4. COSENTYX [Suspect]
     Active Substance: SECUKINUMAB
     Dosage: 300 MG, ONCE/SINGLE
     Route: 058
     Dates: start: 20221004, end: 20221004
  5. COSENTYX [Suspect]
     Active Substance: SECUKINUMAB
     Dosage: 300 MG, ONCE/SINGLE
     Route: 058
     Dates: start: 20221104, end: 20221104
  6. COSENTYX [Suspect]
     Active Substance: SECUKINUMAB
     Dosage: 300 MG, ONCE/SINGLE
     Route: 058
     Dates: start: 20221204, end: 20221204
  7. COSENTYX [Suspect]
     Active Substance: SECUKINUMAB
     Dosage: 300 MG, ONCE/SINGLE
     Route: 058
     Dates: start: 20230104, end: 20230104
  8. METHOTREXATE [Concomitant]
     Active Substance: METHOTREXATE
     Indication: Psoriatic arthropathy
     Dosage: 10 MG, QW
     Route: 058
     Dates: start: 20140729
  9. FOLIC ACID [Concomitant]
     Active Substance: FOLIC ACID
     Indication: Psoriatic arthropathy
     Dosage: 5 MG, QW (1 X WEEKLY ON THE DAY AFTER METHOTREXATE) (IN COMBINATION WITH MTX)
     Route: 048
     Dates: start: 20140729
  10. BISOPROLOL [Concomitant]
     Active Substance: BISOPROLOL
     Indication: Hypertension
     Dosage: 5 MG, QD (ONCE IN THE MORNING)
     Route: 048
     Dates: start: 2012
  11. CANDESARTAN [Concomitant]
     Active Substance: CANDESARTAN
     Indication: Hypertension
     Dosage: 8 MG, QD (ONCE IN THE MORNING)
     Route: 048
     Dates: start: 2012
  12. AMILORIDE\BENDROFLUMETHIAZIDE [Concomitant]
     Active Substance: AMILORIDE\BENDROFLUMETHIAZIDE
     Indication: Hypertension
     Dosage: 2.5 MG, QD (ONCE IN THE MORNING)
     Route: 048
     Dates: start: 2012
  13. VICTOZA [Concomitant]
     Active Substance: LIRAGLUTIDE
     Indication: Type 2 diabetes mellitus
     Dosage: 1.2 MG, QD (ONCE IN THE MORNING)
     Route: 058
     Dates: start: 201604
  14. NEUROPLANT [Concomitant]
     Indication: Depression
     Dosage: 600 MG, QD (ONCE IN THE MORNING)
     Route: 048
     Dates: start: 201208
  15. MAGNESIUM [Concomitant]
     Active Substance: MAGNESIUM
     Indication: Prophylaxis
     Dosage: 50 MG, QD
     Route: 048
     Dates: start: 201208
  16. ETORICOXIB [Concomitant]
     Active Substance: ETORICOXIB
     Indication: Psoriatic arthropathy
     Dosage: 60 MG, PRN (AS REQUIRED)
     Route: 048
     Dates: start: 20220228
  17. IBUPROFEN [Concomitant]
     Active Substance: IBUPROFEN
     Indication: Psoriatic arthropathy
     Dosage: 600 MG, PRN (AS REQUIRED)
     Route: 048
     Dates: start: 20220328
  18. PREDNISOLONE [Concomitant]
     Active Substance: PREDNISOLONE
     Indication: Psoriatic arthropathy
     Dosage: UNK (PULSE THERAPY: 3 DAYS 30MG, 3 DAYS 20MG, 3 DAYS 10MG, 3 DAYS 5MG)
     Route: 048
     Dates: start: 20220718, end: 20220730
  19. PREDNISOLONE [Concomitant]
     Active Substance: PREDNISOLONE
     Dosage: UNK (PULSE THERAPY: 3 DAYS 30MG, 3 DAYS 20MG, 3 DAYS 10MG, 3 DAYS 5MG)
     Route: 048
     Dates: start: 20221005, end: 20221017

REACTIONS (3)
  - Psoriatic arthropathy [Recovered/Resolved]
  - Dactylitis [Recovered/Resolved]
  - Psoriatic arthropathy [Recovered/Resolved]

NARRATIVE: CASE EVENT DATE: 20220701
